FAERS Safety Report 4558833-7 (Version None)
Quarter: 2005Q1

REPORT INFORMATION
  Report Type: 
  Country: None (occurrence: None)
  Receive Date: 20050121
  Receipt Date: 20050110
  Transmission Date: 20050727
  Serious: Yes (Hospitalization)
  Sender: FDA-Public Use
  Company Number: AU-GLAXOSMITHKLINE-B0365059A

PATIENT
  Age: 49 Year
  Sex: Female

DRUGS (5)
  1. FLIXOTIDE [Suspect]
     Indication: ASTHMA
     Dosage: 500MG UNKNOWN
  2. CALTRATE [Concomitant]
  3. PREMARIN [Concomitant]
  4. FOSAMAX [Concomitant]
  5. OSTELIN [Concomitant]

REACTIONS (13)
  - BACK PAIN [None]
  - CANDIDIASIS [None]
  - CHILLS [None]
  - COUGH [None]
  - CYANOSIS [None]
  - DYSPNOEA [None]
  - FATIGUE [None]
  - HAEMORRHOIDS [None]
  - INSOMNIA [None]
  - MEDICATION ERROR [None]
  - NASOPHARYNGITIS [None]
  - PHARMACEUTICAL PRODUCT COMPLAINT [None]
  - PNEUMONIA [None]
